FAERS Safety Report 25217664 (Version 1)
Quarter: 2025Q2

REPORT INFORMATION
  Report Type: Report from Study
  Country: US (occurrence: US)
  Receive Date: 20250420
  Receipt Date: 20250420
  Transmission Date: 20250716
  Serious: Yes (Hospitalization, Other)
  Sender: JOHNSON AND JOHNSON
  Company Number: US-JNJFOC-20250416075

PATIENT
  Age: 66 Year
  Sex: Female

DRUGS (1)
  1. SPRAVATO [Suspect]
     Active Substance: ESKETAMINE
     Indication: Depression
     Route: 045
     Dates: start: 20241227, end: 20250128

REACTIONS (2)
  - Spinal fracture [Unknown]
  - Road traffic accident [Unknown]
